FAERS Safety Report 14692410 (Version 1)
Quarter: 2018Q1

REPORT INFORMATION
  Report Type: Report from Study
  Country: None (occurrence: US)
  Receive Date: 20180329
  Receipt Date: 20180329
  Transmission Date: 20180509
  Serious: Yes (Other)
  Sender: FDA-Public Use
  Company Number: US-ABBVIE-18K-163-2220343-00

PATIENT
  Age: 62 Year
  Sex: Female

DRUGS (2)
  1. HUMIRA [Suspect]
     Active Substance: ADALIMUMAB
     Route: 058
     Dates: start: 201801
  2. HUMIRA [Suspect]
     Active Substance: ADALIMUMAB
     Indication: RHEUMATOID ARTHRITIS
     Route: 058
     Dates: start: 2013, end: 201712

REACTIONS (11)
  - Vertigo [Not Recovered/Not Resolved]
  - Spinal osteoarthritis [Unknown]
  - Trismus [Recovered/Resolved]
  - Rheumatoid arthritis [Recovered/Resolved]
  - Spinal cord compression [Unknown]
  - Nerve root compression [Not Recovered/Not Resolved]
  - Procedural nausea [Unknown]
  - Somnolence [Unknown]
  - Temporomandibular joint syndrome [Not Recovered/Not Resolved]
  - Sleep disorder [Recovering/Resolving]
  - Muscular weakness [Recovered/Resolved]

NARRATIVE: CASE EVENT DATE: 2017
